FAERS Safety Report 7712722-5 (Version None)
Quarter: 2011Q3

REPORT INFORMATION
  Report Type: 
  Country: None (occurrence: None)
  Receive Date: 20110826
  Receipt Date: 20110815
  Transmission Date: 20111222
  Serious: Yes (Hospitalization)
  Sender: FDA-Public Use
  Company Number: US-GLAXOSMITHKLINE-A0834839A

PATIENT
  Age: 62 Year
  Sex: Male
  Weight: 101.8 kg

DRUGS (10)
  1. GLUCOTROL [Concomitant]
  2. TOPROL-XL [Concomitant]
  3. HYDROCHLOROTHIAZIDE [Concomitant]
  4. AVANDIA [Suspect]
     Indication: DIABETES MELLITUS
     Route: 048
     Dates: start: 19990501, end: 20070803
  5. ACTOS [Concomitant]
     Dates: start: 20070803
  6. GLUCOPHAGE [Concomitant]
  7. PRINIVIL [Concomitant]
  8. ZOCOR [Concomitant]
  9. CATAPRES [Concomitant]
  10. BENICAR [Concomitant]

REACTIONS (2)
  - CORONARY ARTERY OCCLUSION [None]
  - MYOCARDIAL INFARCTION [None]
